FAERS Safety Report 4885896-1 (Version None)
Quarter: 2006Q1

REPORT INFORMATION
  Report Type: 
  Country: None (occurrence: None)
  Receive Date: 20060117
  Receipt Date: 20060106
  Transmission Date: 20060701
  Serious: Yes (Life-Threatening)
  Sender: FDA-Public Use
  Company Number: 220663

PATIENT
  Age: 75 Year
  Sex: Male
  Weight: 44 kg

DRUGS (7)
  1. GRTPA (ALTEPLASE) PWDR + SOLVENT, INFUSION SOLN [Suspect]
     Indication: CEREBRAL ARTERY EMBOLISM
     Dosage: 10 % INTRAVENOUS
     Route: 042
     Dates: start: 20051222, end: 20051222
  2. NICARDIPINE HCL [Concomitant]
  3. ANTIHYPERTENSIVE MEDICATION (ANTIHYPERTENSIVE) [Concomitant]
  4. EDARAVONE (EDARAVONE) [Concomitant]
  5. DILTIAZEM HYDROCHLORIDE [Concomitant]
  6. GLYCERIN (GLYCERIN) [Concomitant]
  7. FRUCTOSE (FRUCTOSE) [Concomitant]

REACTIONS (4)
  - ANAPHYLACTIC SHOCK [None]
  - CARDIO-RESPIRATORY ARREST [None]
  - CEREBRAL INFARCTION [None]
  - HEMIPLEGIA [None]
